FAERS Safety Report 4773125-9 (Version None)
Quarter: 2005Q3

REPORT INFORMATION
  Report Type: 
  Country: None (occurrence: None)
  Receive Date: 20050919
  Receipt Date: 20050907
  Transmission Date: 20060218
  Serious: Yes (Other)
  Sender: FDA-Public Use
  Company Number: 2005125151

PATIENT
  Age: 4 Year
  Sex: Male
  Weight: 16.7831 kg

DRUGS (1)
  1. BENADRYL CHILDREN'S ALLERGY AND SINUS (DIPHENHYDRAMINE, PSEUDOEPHEDRIN [Suspect]
     Indication: SINUSITIS
     Dosage: A TEASPOON TWICE IN TOTAL, ORAL
     Route: 048
     Dates: start: 20050906, end: 20050907

REACTIONS (1)
  - HALLUCINATION, VISUAL [None]
